FAERS Safety Report 11137076 (Version 1)
Quarter: 2015Q2

REPORT INFORMATION
  Report Type: Spontaneous
  Country: CA (occurrence: CA)
  Receive Date: 20150526
  Receipt Date: 20150526
  Transmission Date: 20150821
  Serious: Yes (Other)
  Sender: FDA-Public Use
  Company Number: CA-GLAXOSMITHKLINE-CA2015GSK069749

PATIENT
  Age: 57 Year
  Sex: Female

DRUGS (3)
  1. HERCEPTIN [Suspect]
     Active Substance: TRASTUZUMAB
     Indication: BREAST CANCER
     Dosage: UNK
  2. TYKERB [Suspect]
     Active Substance: LAPATINIB DITOSYLATE
     Indication: BREAST CANCER
     Dosage: UNK
     Dates: start: 2010
  3. XELODA [Suspect]
     Active Substance: CAPECITABINE
     Indication: BREAST CANCER
     Dosage: UNK
     Dates: start: 2010, end: 201303

REACTIONS (3)
  - Metastases to lung [Not Recovered/Not Resolved]
  - Metastases to central nervous system [Unknown]
  - Metastases to bone [Unknown]

NARRATIVE: CASE EVENT DATE: 2010
